FAERS Safety Report 19942942 (Version 1)
Quarter: 2021Q4

REPORT INFORMATION
  Report Type: Spontaneous
  Country: US (occurrence: US)
  Receive Date: 20211008
  Receipt Date: 20211008
  Transmission Date: 20220303
  Serious: Yes (Death)
  Sender: FDA-Public Use
  Company Number: None

PATIENT
  Age: 72 Year
  Sex: Male
  Weight: 109.2 kg

DRUGS (22)
  1. PROMACTA [Suspect]
     Active Substance: ELTROMBOPAG OLAMINE
     Indication: Thrombocytopenia
     Route: 048
  2. LEVAQUIN [Concomitant]
     Active Substance: LEVOFLOXACIN
  3. DOXYCYCLINE [Concomitant]
     Active Substance: DOXYCYCLINE
  4. VITAMIN C [Concomitant]
     Active Substance: ASCORBIC ACID
  5. PROTONIX [Concomitant]
     Active Substance: PANTOPRAZOLE SODIUM
  6. LEVEMIR [Concomitant]
     Active Substance: INSULIN DETEMIR
  7. TRELEGY ELLIPTA [Concomitant]
     Active Substance: FLUTICASONE FUROATE\UMECLIDINIUM BROMIDE\VILANTEROL TRIFENATATE
  8. AURYXIA [Concomitant]
     Active Substance: TETRAFERRIC TRICITRATE DECAHYDRATE
  9. ZETIA [Concomitant]
     Active Substance: EZETIMIBE
  10. FENOFIBRATE [Concomitant]
     Active Substance: FENOFIBRATE
  11. NOVOLOG [Concomitant]
     Active Substance: INSULIN ASPART
  12. OCTREOTIDE [Concomitant]
     Active Substance: OCTREOTIDE
  13. NEURONTIN [Concomitant]
     Active Substance: GABAPENTIN
  14. CARAFATE [Concomitant]
     Active Substance: SUCRALFATE
  15. NORCO [Concomitant]
     Active Substance: ACETAMINOPHEN\HYDROCODONE BITARTRATE
  16. PROSCAR [Concomitant]
     Active Substance: FINASTERIDE
  17. LINZESS [Concomitant]
     Active Substance: LINACLOTIDE
  18. BELSOMRA [Concomitant]
     Active Substance: SUVOREXANT
  19. NITROGLYCERIN [Concomitant]
     Active Substance: NITROGLYCERIN
  20. PREDNISONE [Concomitant]
     Active Substance: PREDNISONE
  21. BUMEX [Concomitant]
     Active Substance: BUMETANIDE
  22. ENALAPRIL [Concomitant]
     Active Substance: ENALAPRIL

REACTIONS (1)
  - Death [None]

NARRATIVE: CASE EVENT DATE: 20211006
